FAERS Safety Report 25389492 (Version 1)
Quarter: 2025Q2

REPORT INFORMATION
  Report Type: Report from Study
  Country: US (occurrence: US)
  Receive Date: 20250603
  Receipt Date: 20250603
  Transmission Date: 20250717
  Serious: Yes (Other)
  Sender: DR REDDYS
  Company Number: US-DRL-USA-USA/2025/05/007823

PATIENT
  Sex: Female

DRUGS (2)
  1. JAVYGTOR [Suspect]
     Active Substance: SAPROPTERIN DIHYDROCHLORIDE
     Indication: Hyperphenylalaninaemia
     Dosage: TAKE OR DISSOLVE 12 TABLETS IN 4 TO 8 OZ OF WATER OR APPLE JUICE AND DRINK ONCE DAILY WITH MEAL AS D
     Route: 065
  2. VITAMIN B12 [Concomitant]
     Active Substance: CYANOCOBALAMIN
     Indication: Product used for unknown indication
     Route: 065

REACTIONS (3)
  - Umbilical cord abnormality [Unknown]
  - Procedural pain [Unknown]
  - Product dose omission issue [Unknown]
